FAERS Safety Report 5175504-7 (Version None)
Quarter: 2006Q4

REPORT INFORMATION
  Report Type: 
  Country: None (occurrence: None)
  Receive Date: 20061215
  Receipt Date: 20060713
  Transmission Date: 20070319
  Serious: No
  Sender: FDA-Public Use
  Company Number: US-AMGEN-KDL186138

PATIENT
  Sex: Female

DRUGS (6)
  1. ENBREL [Suspect]
     Indication: RHEUMATOID ARTHRITIS
     Route: 058
     Dates: end: 20060701
  2. METHOTREXATE [Concomitant]
  3. PREDNISONE TAB [Concomitant]
  4. INSULIN [Concomitant]
  5. SYNTHROID [Concomitant]
  6. ESTRACE [Concomitant]

REACTIONS (1)
  - HUMERUS FRACTURE [None]
